FAERS Safety Report 25825452 (Version 1)
Quarter: 2025Q3

REPORT INFORMATION
  Report Type: Spontaneous
  Country: JP (occurrence: JP)
  Receive Date: 20250919
  Receipt Date: 20250919
  Transmission Date: 20251020
  Serious: Yes (Hospitalization)
  Sender: PFIZER
  Company Number: JP-PFIZER INC-PV202500112896

PATIENT
  Age: 6 Decade
  Sex: Male

DRUGS (1)
  1. CIBINQO [Suspect]
     Active Substance: ABROCITINIB
     Route: 048

REACTIONS (2)
  - Neuralgia [Not Recovered/Not Resolved]
  - Herpes zoster [Recovered/Resolved]
